FAERS Safety Report 5250112-8 (Version None)
Quarter: 2007Q1

REPORT INFORMATION
  Report Type: 
  Country: None (occurrence: None)
  Receive Date: 20070228
  Receipt Date: 20060227
  Transmission Date: 20070707
  Serious: No
  Sender: FDA-Public Use
  Company Number: US-GLAXOSMITHKLINE-A0592837A

PATIENT
  Age: 49 Year
  Sex: Female
  Weight: 65 kg

DRUGS (5)
  1. LAMICTAL [Suspect]
     Indication: BIPOLAR DISORDER
     Dosage: 150MG PER DAY
     Route: 048
     Dates: start: 20051001
  2. RISPERDAL [Concomitant]
     Route: 048
  3. LORAZEPAM [Concomitant]
     Route: 048
  4. MESALAMINE [Concomitant]
  5. ASACOL [Concomitant]

REACTIONS (5)
  - BLISTER [None]
  - CHEILITIS [None]
  - ERYTHEMA [None]
  - OEDEMA PERIPHERAL [None]
  - SKIN LESION [None]
